FAERS Safety Report 8054006-4 (Version None)
Quarter: 2012Q1

REPORT INFORMATION
  Report Type: 
  Country: None (occurrence: None)
  Receive Date: 20120118
  Receipt Date: 20120106
  Transmission Date: 20120608
  Serious: Yes (Other)
  Sender: FDA-Public Use
  Company Number: JP-NAPPMUNDI-MAG-2012-0002004

PATIENT
  Age: 73 Year
  Sex: Female

DRUGS (14)
  1. KINEDAK [Concomitant]
     Route: 048
  2. BUPRENORPHINE [Suspect]
     Indication: ARTHRITIS
     Dosage: 5 MCG, Q1H
     Route: 062
     Dates: start: 20111122, end: 20111201
  3. BUPRENORPHINE [Suspect]
     Dosage: 20 MCG, Q1H
     Route: 062
     Dates: start: 20111229, end: 20120105
  4. MELBIN                             /00082702/ [Concomitant]
     Route: 048
  5. AMARYL [Concomitant]
     Route: 048
  6. BUPRENORPHINE [Suspect]
     Dosage: 10 MCG, Q1H
     Route: 062
     Dates: start: 20111202, end: 20111228
  7. CANDESARTAN CILEXETIL [Concomitant]
     Route: 048
  8. SELBEX [Concomitant]
     Route: 048
  9. EQUA [Concomitant]
     Route: 048
  10. TICLOPIDINE HCL [Concomitant]
     Route: 048
  11. DOXAZOSIN MESYLATE [Concomitant]
     Route: 048
  12. ATELEC [Concomitant]
     Route: 048
  13. LASIX [Concomitant]
  14. PRIMPERAN TAB [Concomitant]

REACTIONS (6)
  - MALAISE [None]
  - NASOPHARYNGITIS [None]
  - ABDOMINAL PAIN UPPER [None]
  - VOMITING [None]
  - PULMONARY INFARCTION [None]
  - NAUSEA [None]
